FAERS Safety Report 8133293-8 (Version None)
Quarter: 2012Q1

REPORT INFORMATION
  Report Type: 
  Country: None (occurrence: None)
  Receive Date: 20120213
  Receipt Date: 20120130
  Transmission Date: 20120608
  Serious: Yes (Other)
  Sender: FDA-Public Use
  Company Number: JO-ROCHE-1036987

PATIENT
  Age: 2 Year
  Sex: Male
  Weight: 13 kg

DRUGS (2)
  1. VANCOMYCIN [Concomitant]
     Indication: MENINGITIS
  2. CEFTRIAXONE [Suspect]
     Indication: MENINGITIS

REACTIONS (1)
  - URINARY RETENTION [None]
